FAERS Safety Report 17128900 (Version 1)
Quarter: 2019Q4

REPORT INFORMATION
  Report Type: Spontaneous
  Country: FR (occurrence: FR)
  Receive Date: 20191209
  Receipt Date: 20191209
  Transmission Date: 20200122
  Serious: Yes (Death, Hospitalization)
  Sender: FDA-Public Use
  Company Number: FR-FERA PHARMACEUTICALS, LLC-2019PRG00262

PATIENT
  Age: 62 Year
  Sex: Male

DRUGS (2)
  1. CEFTRIAXONE. [Concomitant]
     Active Substance: CEFTRIAXONE
     Dosage: 3 G, 1X/DAY
     Route: 065
  2. DEXAMETHASONE. [Suspect]
     Active Substance: DEXAMETHASONE
     Indication: ENCEPHALITIS
     Dosage: 10 MG, 4X/DAY (EVERY 6 HOURS)
     Route: 065

REACTIONS (2)
  - Cerebral ischaemia [Fatal]
  - Central nervous system vasculitis [Fatal]
